FAERS Safety Report 23991916 (Version 1)
Quarter: 2024Q2

REPORT INFORMATION
  Report Type: Report from Study
  Country: ZA (occurrence: ZA)
  Receive Date: 20240620
  Receipt Date: 20240620
  Transmission Date: 20240716
  Serious: Yes (Hospitalization, Other)
  Sender: FDA-Public Use
  Company Number: ZA-ABBOTT-2024A-1382911

PATIENT
  Age: 78 Year
  Sex: Female

DRUGS (6)
  1. FENOFIBRATE [Suspect]
     Active Substance: FENOFIBRATE
     Indication: Blood cholesterol abnormal
     Dosage: 200 MG DIRECTIONS TAKE ONE CAPSULE AT NIGHT
     Route: 048
  2. PANTOPRAZOLE SODIUM [Suspect]
     Active Substance: PANTOPRAZOLE SODIUM
     Indication: Ulcer
     Dosage: 20 MG DIRECTIONS TAKE ONE TABLET ONCE A DAY
     Route: 048
  3. ECOTRIN [Suspect]
     Active Substance: ASPIRIN
     Indication: Blood disorder
     Dosage: 81 MG DIRECTIONS TAKE ONE TABLET ONCE A DAY
     Route: 048
  4. NITROFURANTOIN [Suspect]
     Active Substance: NITROFURANTOIN
     Indication: Product used for unknown indication
     Dosage: 50 MG DIRECTIONS TAKE ONE CAPSULE AT NIGHT, ?CIPLADANTIN NITROFURANTOIN
     Route: 048
  5. LACTOBACILLUS REUTERI [Suspect]
     Active Substance: LACTOBACILLUS REUTERI
     Indication: Product used for unknown indication
     Dosage: DIRECTIONS TAKE ONE TABLET TWICE A DAY
     Route: 048
  6. CEFPODOXIME PROXETIL [Suspect]
     Active Substance: CEFPODOXIME PROXETIL
     Indication: Product used for unknown indication
     Dosage: 200 MG DIRECTIONS TAKE ONE TABLET TWICE A DAY AFTER FOOD FOR 7 DAYS
     Route: 048

REACTIONS (3)
  - Spinal operation [Unknown]
  - Illness [Unknown]
  - Fall [Unknown]
